FAERS Safety Report 9128698 (Version 1)
Quarter: 2013Q1

REPORT INFORMATION
  Report Type: Spontaneous
  Country: GB (occurrence: GB)
  Receive Date: 20130125
  Receipt Date: 20130125
  Transmission Date: 20140127
  Serious: Yes (Disabling)
  Sender: FDA-Public Use
  Company Number: GB-BAYER-2013-009119

PATIENT
  Age: 42 Year
  Sex: Male

DRUGS (12)
  1. CIPROFLOXACIN [Suspect]
     Indication: PILONIDAL CYST
     Dosage: 500 MG, UNK
     Route: 048
     Dates: start: 20130108, end: 20130108
  2. METRONIDAZOLE [Suspect]
     Indication: PILONIDAL CYST
     Dosage: UNK
     Route: 048
     Dates: start: 20130108, end: 20130109
  3. ERYTHROMYCIN [Concomitant]
     Indication: PILONIDAL CYST
     Dosage: 250 MG, UNK
     Route: 048
     Dates: start: 20121220, end: 20121227
  4. ERYTHROMYCIN [Concomitant]
     Indication: PILONIDAL CYST
     Dosage: 500 MG, QID
  5. CO-CODAMOL [Concomitant]
     Indication: PAIN
     Dosage: 2 DF, 4 PER DAY
     Route: 048
     Dates: start: 20130108
  6. IBUPROFEN [Concomitant]
     Indication: PAIN
     Dosage: 400 MG, UNK
     Route: 048
     Dates: start: 20130109, end: 201301
  7. MORPHINE SULPHATE [Concomitant]
     Indication: PAIN
     Dosage: 20 MG, UNK
     Route: 048
  8. MORPHINE SULPHATE [Concomitant]
     Indication: PAIN
     Dosage: 10 MG, UNK
     Route: 042
     Dates: start: 20130109, end: 20130109
  9. PARACETAMOL [Concomitant]
     Dosage: 1 G, UNK
     Route: 048
  10. PARACETAMOL [Concomitant]
     Dosage: 500 MG, UNK
     Dates: start: 20130109, end: 20130109
  11. TRAMADOL [Concomitant]
     Indication: PAIN
     Dosage: 100 MG, UNK
     Route: 048
  12. TRAMADOL [Concomitant]
     Indication: PAIN
     Dosage: 50 MG, UNK
     Dates: start: 20130109, end: 20130109

REACTIONS (2)
  - Deafness bilateral [Not Recovered/Not Resolved]
  - Vertigo [Not Recovered/Not Resolved]
